FAERS Safety Report 5527869-1 (Version None)
Quarter: 2007Q4

REPORT INFORMATION
  Report Type: 
  Country: None (occurrence: None)
  Receive Date: 20071128
  Receipt Date: 20071126
  Transmission Date: 20080405
  Serious: Yes (Death)
  Sender: FDA-Public Use
  Company Number: KR-BRISTOL-MYERS SQUIBB COMPANY-13995543

PATIENT

DRUGS (5)
  1. CARBOPLATIN [Suspect]
     Indication: HEPATIC NEOPLASM MALIGNANT
  2. CISPLATIN [Suspect]
     Indication: HEPATIC NEOPLASM MALIGNANT
  3. DOXORUBICIN HCL [Suspect]
     Indication: HEPATIC NEOPLASM MALIGNANT
  4. FLUOROURACIL [Suspect]
     Indication: HEPATIC NEOPLASM MALIGNANT
  5. RADIOTHERAPY [Suspect]
     Indication: HEPATIC NEOPLASM MALIGNANT

REACTIONS (1)
  - HEPATIC FAILURE [None]
